FAERS Safety Report 20199302 (Version 1)
Quarter: 2021Q4

REPORT INFORMATION
  Report Type: Spontaneous
  Country: US (occurrence: None)
  Receive Date: 20211216
  Receipt Date: 20211216
  Transmission Date: 20220303
  Serious: Yes (Life-Threatening, Hospitalization)
  Sender: FDA-Public Use
  Company Number: None

PATIENT
  Age: 64 Year
  Sex: Male
  Weight: 94.35 kg

DRUGS (2)
  1. DOXORUBICIN [Suspect]
     Active Substance: DOXORUBICIN
     Indication: Diffuse large B-cell lymphoma
     Route: 042
     Dates: start: 20200909, end: 20201209
  2. CYCLOPHOSPHAMIDE [Suspect]
     Active Substance: CYCLOPHOSPHAMIDE
     Indication: Diffuse large B-cell lymphoma
     Route: 042
     Dates: start: 20200909, end: 20201209

REACTIONS (11)
  - Thrombocytopenia [None]
  - Anaemia [None]
  - Pyrexia [None]
  - Electrolyte imbalance [None]
  - Febrile neutropenia [None]
  - Hypokalaemia [None]
  - Hypomagnesaemia [None]
  - Fatigue [None]
  - Hypophagia [None]
  - Urinary tract infection [None]
  - Failure to thrive [None]

NARRATIVE: CASE EVENT DATE: 20201228
